FAERS Safety Report 16003201 (Version 1)
Quarter: 2019Q1

REPORT INFORMATION
  Report Type: Spontaneous
  Country: US (occurrence: US)
  Receive Date: 20190225
  Receipt Date: 20190225
  Transmission Date: 20190418
  Serious: No
  Sender: FDA-Public Use
  Company Number: US-SA-2019SA049965

PATIENT
  Age: 70 Year
  Sex: Female

DRUGS (1)
  1. PRALUENT [Suspect]
     Active Substance: ALIROCUMAB
     Indication: BLOOD CHOLESTEROL
     Dosage: 75 MG, QOW
     Route: 058
     Dates: start: 20190204, end: 20190218

REACTIONS (10)
  - Chest pain [Recovering/Resolving]
  - Product dose omission [Recovering/Resolving]
  - Abdominal pain upper [Recovering/Resolving]
  - Pain in extremity [Recovering/Resolving]
  - Dyspepsia [Recovering/Resolving]
  - Influenza [Recovering/Resolving]
  - Nausea [Recovering/Resolving]
  - Unevaluable event [Recovering/Resolving]
  - Pain [Recovering/Resolving]
  - Muscle spasms [Recovering/Resolving]

NARRATIVE: CASE EVENT DATE: 20190218
